FAERS Safety Report 19206915 (Version 2)
Quarter: 2021Q2

REPORT INFORMATION
  Report Type: Spontaneous
  Country: DE (occurrence: DE)
  Receive Date: 20210430
  Receipt Date: 20210517
  Transmission Date: 20210717
  Serious: Yes (Death, Life-Threatening, Hospitalization)
  Sender: FDA-Public Use
  Company Number: DE-ELI_LILLY_AND_COMPANY-DE202104012332

PATIENT
  Sex: Male

DRUGS (7)
  1. METAMIZOLE [Concomitant]
     Active Substance: METAMIZOLE
     Route: 042
  2. MACROGOL [Concomitant]
     Active Substance: POLYETHYLENE GLYCOLS
  3. OXYCODON NALOXON MEPHA [Concomitant]
     Dosage: 20 / 10 MG TBL
  4. PANTOPRAZOLE [Concomitant]
     Active Substance: PANTOPRAZOLE
     Dosage: 40 MG, UNKNOWN
  5. OXYCODONE HYDROCHLORIDE. [Concomitant]
     Active Substance: OXYCODONE HYDROCHLORIDE
     Dosage: 3 MG / 3 ML
  6. HEPARIN [Concomitant]
     Active Substance: HEPARIN SODIUM
     Dosage: 25000 INTERNATIONAL UNIT, OTHER
     Route: 042
  7. HUMULIN N [Suspect]
     Active Substance: INSULIN HUMAN
     Indication: PHYSICAL ASSAULT
     Dosage: UNK, UNKNOWN
     Route: 065

REACTIONS (6)
  - Disturbance in attention [Unknown]
  - Hypokalaemia [Fatal]
  - Shock hypoglycaemic [Fatal]
  - Intentional product misuse [Fatal]
  - Urinary retention [Unknown]
  - Decreased appetite [Unknown]

NARRATIVE: CASE EVENT DATE: 201607
